FAERS Safety Report 9825268 (Version 6)
Quarter: 2014Q1

REPORT INFORMATION
  Report Type: Report from Study
  Country: US (occurrence: US)
  Receive Date: 20140117
  Receipt Date: 20140212
  Transmission Date: 20141002
  Serious: Yes (Other)
  Sender: FDA-Public Use
  Company Number: PHEH2014US000896

PATIENT
  Age: 56 Year
  Sex: Female

DRUGS (1)
  1. TEGRETOL-XR [Suspect]
     Dosage: 100 MG, BID
     Route: 048

REACTIONS (6)
  - Convulsion [Unknown]
  - Epilepsy [Unknown]
  - Influenza [Unknown]
  - Migraine [Unknown]
  - Malaise [Unknown]
  - Photosensitivity reaction [Unknown]
